FAERS Safety Report 7230963-0 (Version None)
Quarter: 2011Q1

REPORT INFORMATION
  Report Type: 
  Country: None (occurrence: None)
  Receive Date: 20110118
  Receipt Date: 20110107
  Transmission Date: 20110831
  Serious: Yes (Hospitalization)
  Sender: FDA-Public Use
  Company Number: FR-ROCHE-748738

PATIENT
  Sex: Male
  Weight: 29.9 kg

DRUGS (11)
  1. ACTINOMYCIN D [Suspect]
     Indication: SARCOMA METASTATIC
     Dosage: LAST DOSE PRIOR TO SAE: 27 FEBRUARY 2010. DOSAGE FORM: 1.5 MG/M2,  DRUG: ACYINOMYCIN D.
     Route: 042
     Dates: start: 20100227
  2. ADALAT [Concomitant]
     Dates: start: 20101215
  3. BEVACIZUMAB [Suspect]
     Indication: SARCOMA METASTATIC
     Dosage: LAST DOSE PRIOR TO SAE: 01 DECEMBER 2010. DOSAGE FORM REPORTED AS: 5 MG/KG, TEMPORARILY INTERRUPTED
     Route: 042
     Dates: start: 20100227, end: 20101214
  4. FERROSTRANE [Concomitant]
     Dates: start: 20101215
  5. DOXORUBICIN [Suspect]
     Indication: SARCOMA METASTATIC
     Dosage: LAST DOSE PRIOR TO SAE: 28 FEBRUARY 2010. DOSAGE FORM: 60MG/M2
     Route: 042
     Dates: start: 20100227
  6. IFOSFAMIDE [Suspect]
     Indication: SARCOMA METASTATIC
     Dosage: LAST DOSE PRIOR TO SAE: 28 FEBRUARY 2010. DOSAGE FORM: 6G/M2
     Route: 042
     Dates: start: 20100227
  7. CYCLOPHOSPHAMIDE [Suspect]
     Indication: SARCOMA METASTATIC
     Dosage: DOSE:16-25 MG, FORM:16-25 MG, LAST DOSE: 14 DEC 2010
     Route: 042
     Dates: start: 20101018, end: 20101214
  8. VINCRISTINE [Suspect]
     Indication: SARCOMA METASTATIC
     Dosage: LAST DOSE PRIOR TO SAE: 27 FEBRUARY 2010. DOSAGE FORM: 1.5MG/M2
     Route: 042
     Dates: start: 20100227
  9. ENALAPRIL MALEATE [Concomitant]
     Dosage: TDD : 10 MG/D.
     Dates: start: 20101215
  10. VINORELBINE [Suspect]
     Indication: SARCOMA METASTATIC
     Dosage: DOSE:16-25 MG, FORM:16-25 MG/M2, LAST DOSE: 24 NOV 2010
     Route: 042
     Dates: start: 20101018
  11. BACTRIM [Concomitant]
     Dates: start: 20100227, end: 20101214

REACTIONS (2)
  - MICROANGIOPATHY [None]
  - POST PROCEDURAL HAEMATOMA [None]
